FAERS Safety Report 8018802-1 (Version None)
Quarter: 2012Q1

REPORT INFORMATION
  Report Type: 
  Country: None (occurrence: None)
  Receive Date: 20120103
  Receipt Date: 20111219
  Transmission Date: 20120608
  Serious: Yes (Hospitalization)
  Sender: FDA-Public Use
  Company Number: FR-TEVA-315285ISR

PATIENT
  Sex: Female

DRUGS (5)
  1. CC-2013 [Suspect]
     Route: 048
     Dates: start: 20111121, end: 20111121
  2. LOVENOX [Concomitant]
     Indication: THROMBOSIS PROPHYLAXIS
     Dosage: 40 MILLIGRAM;
     Route: 048
     Dates: start: 20090930, end: 20100211
  3. DEXAMETHASONE [Suspect]
     Indication: MULTIPLE MYELOMA
     Dates: start: 20090923
  4. DEXAMETHASONE [Suspect]
     Dates: start: 20111121, end: 20111121
  5. CC-2013 [Suspect]
     Indication: MULTIPLE MYELOMA
     Route: 048
     Dates: start: 20090923

REACTIONS (1)
  - CONFUSIONAL STATE [None]
